FAERS Safety Report 10660846 (Version 3)
Quarter: 2015Q1

REPORT INFORMATION
  Report Type: Spontaneous
  Country: FR (occurrence: FR)
  Receive Date: 20141218
  Receipt Date: 20150219
  Transmission Date: 20150720
  Serious: Yes (Death, Other)
  Sender: FDA-Public Use
  Company Number: FR-ROCHE-1507741

PATIENT
  Age: 36 Year
  Sex: Female
  Weight: 60 kg

DRUGS (4)
  1. TAXOL [Suspect]
     Active Substance: PACLITAXEL
     Indication: CHEMOTHERAPY
     Route: 042
  2. ZOPHREN [Concomitant]
     Active Substance: ONDANSETRON
  3. SOLU-MEDROL [Concomitant]
     Active Substance: METHYLPREDNISOLONE SODIUM SUCCINATE
  4. AVASTIN [Suspect]
     Active Substance: BEVACIZUMAB
     Indication: BREAST CANCER METASTATIC
     Route: 042
     Dates: start: 20140507, end: 20141008

REACTIONS (2)
  - Disease progression [Fatal]
  - Cell death [Not Recovered/Not Resolved]

NARRATIVE: CASE EVENT DATE: 20140826
